FAERS Safety Report 9343743 (Version 1)
Quarter: 2013Q2

REPORT INFORMATION
  Report Type: Spontaneous
  Country: US (occurrence: US)
  Receive Date: 20130612
  Receipt Date: 20130612
  Transmission Date: 20140414
  Serious: Yes (Other)
  Sender: FDA-Public Use
  Company Number: US-JNJFOC-20130601239

PATIENT
  Age: 65 Year
  Sex: Male
  Weight: 108.86 kg

DRUGS (5)
  1. INVOKANA [Suspect]
     Indication: TYPE 2 DIABETES MELLITUS
     Route: 048
     Dates: start: 20130523, end: 20130531
  2. DIOVAN [Concomitant]
     Indication: BLOOD PRESSURE
     Route: 048
  3. CRESTOR [Concomitant]
     Indication: BLOOD CHOLESTEROL
     Route: 048
  4. ASPIRIN [Concomitant]
     Route: 048
  5. VITAMIN [Concomitant]
     Indication: MEDICAL DIET
     Route: 048

REACTIONS (3)
  - Pyrexia [Unknown]
  - Urinary tract infection [Unknown]
  - Blood glucose increased [Unknown]
